FAERS Safety Report 9881919 (Version 1)
Quarter: 2014Q1

REPORT INFORMATION
  Report Type: Spontaneous
  Country: US (occurrence: None)
  Receive Date: 20140205
  Receipt Date: 20140205
  Transmission Date: 20141002
  Serious: Yes (Death)
  Sender: FDA-Public Use
  Company Number: DEP_01883_2014

PATIENT
  Age: 59 Year
  Sex: Female

DRUGS (8)
  1. GABAPENTIN [Suspect]
     Dosage: DF ORAL
     Route: 048
  2. VERAPAMIL [Suspect]
     Dosage: DF ORAL
  3. SERTRALINE [Suspect]
     Dosage: DF ORAL
  4. NEBIVOLOL [Suspect]
     Dosage: DF ORAL
     Route: 048
  5. LEVETIRACETAM [Suspect]
     Dosage: DF ORAL
     Route: 048
  6. DANAZOL [Suspect]
     Dosage: DF ORAL
     Route: 048
  7. PRAMIPEXOLE [Suspect]
  8. ALBUTEROL W/IPRATROPIUM [Suspect]
     Dosage: DF PO
     Route: 048

REACTIONS (3)
  - Poisoning [None]
  - Exposure via ingestion [None]
  - Completed suicide [None]
